FAERS Safety Report 4898411-3 (Version None)
Quarter: 2006Q1

REPORT INFORMATION
  Report Type: 
  Country: None (occurrence: None)
  Receive Date: 20060126
  Receipt Date: 20050520
  Transmission Date: 20060701
  Serious: Yes (Other)
  Sender: FDA-Public Use
  Company Number: 2006BH000289

PATIENT
  Sex: Female

DRUGS (4)
  1. HEMOFIL [Suspect]
     Indication: FACTOR VIII DEFICIENCY
     Dates: start: 19800101
  2. HEMOFIL [Suspect]
     Indication: FACTOR VIII DEFICIENCY
     Dates: start: 19840101
  3. PROPLEX T [Suspect]
     Indication: FACTOR VIII DEFICIENCY
     Dates: start: 19800101
  4. PROPLEX T [Suspect]
     Indication: FACTOR VIII DEFICIENCY
     Dates: start: 19840101

REACTIONS (1)
  - HEPATITIS C VIRUS [None]
